FAERS Safety Report 14486923 (Version 2)
Quarter: 2018Q1

REPORT INFORMATION
  Report Type: Spontaneous
  Country: JP (occurrence: JP)
  Receive Date: 20180205
  Receipt Date: 20180215
  Transmission Date: 20180509
  Serious: Yes (Other)
  Sender: FDA-Public Use
  Company Number: JP-TEVA-2018-JP-853299

PATIENT
  Age: 62 Year
  Sex: Male

DRUGS (2)
  1. CARBOPLATIN (CBDCA) [Suspect]
     Active Substance: CARBOPLATIN
     Indication: NASOPHARYNGEAL CANCER
     Dosage: AUC 5 MG/ML/MIN ON DAY 1
     Route: 065
  2. ETP (ETOPOSIDE) [Suspect]
     Active Substance: ETOPOSIDE
     Indication: NASOPHARYNGEAL CANCER
     Dosage: 80 MG/M2 ON DAYS 1-3
     Route: 065

REACTIONS (2)
  - Febrile neutropenia [Recovered/Resolved]
  - Pseudomonas infection [Recovered/Resolved]
